FAERS Safety Report 10449552 (Version 1)
Quarter: 2014Q3

REPORT INFORMATION
  Report Type: Spontaneous
  Country: US (occurrence: None)
  Receive Date: 20140911
  Receipt Date: 20140911
  Transmission Date: 20150326
  Serious: Yes (Other)
  Sender: FDA-Public Use
  Company Number: None

PATIENT
  Age: 36 Year
  Sex: Male
  Weight: 104.33 kg

DRUGS (1)
  1. ESCITALOPRAM [Suspect]
     Active Substance: ESCITALOPRAM OXALATE
     Indication: ANXIETY
     Dosage: 1 PILL ONCE DAILY TAKEN BY MOUTH
     Route: 048
     Dates: start: 20140827, end: 20140910

REACTIONS (8)
  - Abdominal discomfort [None]
  - Irritable bowel syndrome [None]
  - Nausea [None]
  - Agitation [None]
  - Dry mouth [None]
  - Job dissatisfaction [None]
  - Irritability [None]
  - Abnormal dreams [None]

NARRATIVE: CASE EVENT DATE: 20140909
